FAERS Safety Report 19846175 (Version 1)
Quarter: 2021Q3

REPORT INFORMATION
  Report Type: Spontaneous
  Country: DE (occurrence: DE)
  Receive Date: 20210917
  Receipt Date: 20210917
  Transmission Date: 20211014
  Serious: Yes (Hospitalization)
  Sender: FDA-Public Use
  Company Number: DE-TEVA-2021-DE-1951963

PATIENT
  Age: 79 Year
  Sex: Male
  Weight: 85 kg

DRUGS (5)
  1. ALLOPURINOL. [Interacting]
     Active Substance: ALLOPURINOL
     Dosage: .5 DOSAGE FORMS DAILY; 300 MG, 0?0.5?0?0,
     Route: 048
  2. CARVEDILOL. [Concomitant]
     Active Substance: CARVEDILOL
     Dosage: 25 MILLIGRAM DAILY;  1?0?0?0
     Route: 048
  3. TORASEMID [Interacting]
     Active Substance: TORSEMIDE
     Dosage: 50 MILLIGRAM DAILY;   1?0?0?0,
     Route: 048
  4. OLMESARTAN [Suspect]
     Active Substance: OLMESARTAN
     Dosage: 2 DOSAGE FORMS DAILY; 20 MG, 2?0?0?0,
     Route: 048
  5. ACETYLSALICYLSAURE [Concomitant]
     Active Substance: ASPIRIN
     Dosage: 100 MILLIGRAM DAILY;   0?1?0?0
     Route: 048

REACTIONS (5)
  - Labelled drug-drug interaction medication error [Unknown]
  - Abscess limb [Recovering/Resolving]
  - Product monitoring error [Unknown]
  - Drug interaction [Unknown]
  - Pancreatic carcinoma metastatic [Recovering/Resolving]
